FAERS Safety Report 12189286 (Version 3)
Quarter: 2016Q2

REPORT INFORMATION
  Report Type: Spontaneous
  Country: BA (occurrence: BA)
  Receive Date: 20160317
  Receipt Date: 20160406
  Transmission Date: 20160815
  Serious: Yes (Hospitalization, Other)
  Sender: FDA-Public Use
  Company Number: BA-ABBVIE-16K-211-1585488-00

PATIENT
  Age: 14 Year
  Sex: Male

DRUGS (12)
  1. METHOTREXATUM [Concomitant]
     Indication: PRODUCT USED FOR UNKNOWN INDICATION
     Dates: end: 20150710
  2. MEDROL [Concomitant]
     Active Substance: METHYLPREDNISOLONE
  3. RANITIDINE. [Concomitant]
     Active Substance: RANITIDINE
     Indication: PRODUCT USED FOR UNKNOWN INDICATION
     Dosage: 2 X 1 TABLET
  4. FOLIC ACID. [Concomitant]
     Active Substance: FOLIC ACID
     Indication: PRODUCT USED FOR UNKNOWN INDICATION
     Dosage: 1/4 TABLET
  5. INDOMETHACIN. [Concomitant]
     Active Substance: INDOMETHACIN
     Indication: PRODUCT USED FOR UNKNOWN INDICATION
     Dosage: 50+25
  6. INDOMETHACIN. [Concomitant]
     Active Substance: INDOMETHACIN
     Dosage: 2X25MG
  7. MEDROL [Concomitant]
     Active Substance: METHYLPREDNISOLONE
     Indication: PRODUCT USED FOR UNKNOWN INDICATION
  8. MEDROL [Concomitant]
     Active Substance: METHYLPREDNISOLONE
  9. CALCIMED D3 [Concomitant]
     Active Substance: CALCIUM CARBONATE\CHOLECALCIFEROL
     Indication: PRODUCT USED FOR UNKNOWN INDICATION
     Dosage: 2 TABLET
  10. SULFASALZIN KRKA [Concomitant]
     Indication: PRODUCT USED FOR UNKNOWN INDICATION
  11. FOLACIN [Concomitant]
     Active Substance: FOLIC ACID
     Indication: PRODUCT USED FOR UNKNOWN INDICATION
     Dosage: 1/4TH TAB
  12. HUMIRA [Suspect]
     Active Substance: ADALIMUMAB
     Indication: JUVENILE IDIOPATHIC ARTHRITIS
     Route: 058
     Dates: start: 20111115, end: 201407

REACTIONS (8)
  - Necrosis [Unknown]
  - Abdominal pain [Recovered/Resolved]
  - Hospitalisation [Unknown]
  - Constipation [Recovered/Resolved]
  - Intestinal polyp [Unknown]
  - Ultrasound Doppler abnormal [Unknown]
  - Lymph nodes scan abnormal [Unknown]
  - Musculoskeletal stiffness [Unknown]

NARRATIVE: CASE EVENT DATE: 201207
